FAERS Safety Report 4768655-X (Version None)
Quarter: 2005Q3

REPORT INFORMATION
  Report Type: 
  Country: None (occurrence: None)
  Receive Date: 20050913
  Receipt Date: 20050830
  Transmission Date: 20060218
  Serious: Yes (Other)
  Sender: FDA-Public Use
  Company Number: 217407

PATIENT
  Sex: 0

DRUGS (1)
  1. AVASTIN [Suspect]

REACTIONS (2)
  - BLINDNESS UNILATERAL [None]
  - PULMONARY EMBOLISM [None]
